FAERS Safety Report 8142357-4 (Version None)
Quarter: 2012Q1

REPORT INFORMATION
  Report Type: 
  Country: None (occurrence: None)
  Receive Date: 20120216
  Receipt Date: 20120213
  Transmission Date: 20120608
  Serious: Yes (Other)
  Sender: FDA-Public Use
  Company Number: PHEH2011US011092

PATIENT
  Sex: Female
  Weight: 65.3 kg

DRUGS (5)
  1. METFORMIN HCL [Concomitant]
     Route: 048
  2. LISINOPRIL [Concomitant]
     Dosage: 10 G, UNK
     Route: 048
  3. JANUNA [Concomitant]
     Dosage: 100 G, UNK
     Route: 048
  4. RECLAST [Suspect]
     Indication: OSTEOPOROSIS
     Dosage: 5 MG
     Route: 042
     Dates: start: 20101207
  5. LOSARTAN POTASSIUM [Concomitant]
     Route: 048

REACTIONS (2)
  - FALL [None]
  - HIP FRACTURE [None]
